FAERS Safety Report 4817059-X (Version None)
Quarter: 2005Q4

REPORT INFORMATION
  Report Type: 
  Country: None (occurrence: None)
  Receive Date: 20051101
  Receipt Date: 20051019
  Transmission Date: 20060501
  Serious: Yes (Other)
  Sender: FDA-Public Use
  Company Number: DE-GLAXOSMITHKLINE-D0047758A

PATIENT
  Age: 9 Year
  Sex: Female
  Weight: 35 kg

DRUGS (2)
  1. ATEMUR [Suspect]
     Indication: ASTHMA
     Dosage: 1PUFF TWICE PER DAY
     Route: 055
     Dates: start: 19991201
  2. FLUTIDE [Concomitant]
     Route: 065

REACTIONS (1)
  - LENTICULAR OPACITIES [None]
